FAERS Safety Report 8331700-9 (Version None)
Quarter: 2012Q2

REPORT INFORMATION
  Report Type: 
  Country: None (occurrence: None)
  Receive Date: 20120502
  Receipt Date: 20110805
  Transmission Date: 20120825
  Serious: No
  Sender: FDA-Public Use
  Company Number: US-ASTRAZENECA-2011SE47029

PATIENT
  Age: 55 Year
  Sex: Female
  Weight: 45.4 kg

DRUGS (5)
  1. ENTOCORT EC [Suspect]
     Indication: COLITIS MICROSCOPIC
     Route: 048
     Dates: start: 20110501
  2. DIAZEPAM [Concomitant]
  3. ZETIA [Concomitant]
  4. PERCOCET [Concomitant]
  5. VISTARIL [Concomitant]

REACTIONS (5)
  - PAIN [None]
  - ASTHENIA [None]
  - WEIGHT DECREASED [None]
  - DIARRHOEA [None]
  - FATIGUE [None]
